FAERS Safety Report 9391684 (Version 3)
Quarter: 2013Q3

REPORT INFORMATION
  Report Type: Spontaneous
  Country: ES (occurrence: ES)
  Receive Date: 20130709
  Receipt Date: 20130912
  Transmission Date: 20140515
  Serious: Yes (Hospitalization)
  Sender: FDA-Public Use
  Company Number: ES-B.I. PHARMACEUTICALS,INC./RIDGEFIELD-2013-ES-00338ES

PATIENT
  Age: 81 Year
  Sex: Female
  Weight: 75 kg

DRUGS (8)
  1. PRADAXA [Suspect]
     Indication: ATRIAL FIBRILLATION
     Dosage: 220 MG
     Route: 048
     Dates: start: 201206, end: 20130628
  2. BIMATOPROST COLIRIUM [Concomitant]
  3. TIMOLOL/BRIMONIDINA COLIRIUM [Concomitant]
  4. OMEPRAZOL [Concomitant]
     Dosage: 20 MG
  5. KEPPRA [Concomitant]
     Dosage: 1000 MG
  6. OLMESARTAN/HTZ [Concomitant]
     Dosage: STRENGTH:40/12.5. DD: 40/12.5
  7. CARRELDON R [Concomitant]
     Dosage: 240 MG
  8. INACID [Concomitant]
     Dosage: SPORADICALLY

REACTIONS (2)
  - Intraventricular haemorrhage [Not Recovered/Not Resolved]
  - Fall [Unknown]
